FAERS Safety Report 15475339 (Version 1)
Quarter: 2018Q4

REPORT INFORMATION
  Report Type: Spontaneous
  Country: US (occurrence: US)
  Receive Date: 20181008
  Receipt Date: 20181008
  Transmission Date: 20190205
  Serious: No
  Sender: FDA-Public Use
  Company Number: US-CHILTERN-US-2018-000132

PATIENT
  Sex: Female

DRUGS (1)
  1. RHOPRESSA [Suspect]
     Active Substance: NETARSUDIL MESYLATE
     Indication: INTRAOCULAR PRESSURE INCREASED
     Dosage: UNK, UNK
     Route: 047

REACTIONS (1)
  - Myopia [Not Recovered/Not Resolved]
